FAERS Safety Report 6075417-2 (Version None)
Quarter: 2009Q1

REPORT INFORMATION
  Report Type: 
  Country: None (occurrence: None)
  Receive Date: 20090210
  Receipt Date: 20090210
  Transmission Date: 20090719
  Serious: Yes (Other)
  Sender: FDA-Public Use
  Company Number: None

PATIENT
  Age: 5 Year
  Sex: Female
  Weight: 17.2367 kg

DRUGS (1)
  1. SINGULAIR [Suspect]
     Indication: ALLERGIC COUGH
     Dosage: 1 TABLET ONCE/ DAY PO
     Route: 048
     Dates: start: 20090201, end: 20090205

REACTIONS (4)
  - ABNORMAL SLEEP-RELATED EVENT [None]
  - PALPITATIONS [None]
  - SLEEP TALKING [None]
  - SOMNAMBULISM [None]
